FAERS Safety Report 5298084-4 (Version None)
Quarter: 2007Q2

REPORT INFORMATION
  Report Type: 
  Country: None (occurrence: None)
  Receive Date: 20070416
  Receipt Date: 20070403
  Transmission Date: 20071010
  Serious: Yes (Other)
  Sender: FDA-Public Use
  Company Number: PHEH2007US03924

PATIENT
  Age: 53 Year
  Sex: Male

DRUGS (4)
  1. ZOMETA [Suspect]
     Indication: MULTIPLE MYELOMA
     Dosage: 4 MG  MONTHLY
     Dates: start: 20070105
  2. ZOMETA [Suspect]
     Dates: start: 20070101
  3. BORTEZOMIB [Concomitant]
     Dosage: 2.6 MG, BIW
     Route: 042
     Dates: start: 20061201
  4. DOXIL [Concomitant]
     Dosage: 120 MG EVERY 21 DAYS
     Route: 042
     Dates: start: 20070301

REACTIONS (4)
  - BLOOD CREATININE INCREASED [None]
  - BLOOD MAGNESIUM INCREASED [None]
  - BLOOD POTASSIUM DECREASED [None]
  - HYPERCALCAEMIA [None]
